FAERS Safety Report 25635577 (Version 1)
Quarter: 2025Q3

REPORT INFORMATION
  Report Type: Spontaneous
  Country: US (occurrence: US)
  Receive Date: 20250802
  Receipt Date: 20250802
  Transmission Date: 20251020
  Serious: Yes (Death, Hospitalization, Other)
  Sender: AMGEN
  Company Number: US-AMGEN-USASP2025148504

PATIENT
  Age: 70 Year
  Sex: Female

DRUGS (5)
  1. RITUXIMAB [Suspect]
     Active Substance: RITUXIMAB
     Indication: Diffuse large B-cell lymphoma
     Route: 065
  2. DOXYCYCLINE [Concomitant]
     Active Substance: DOXYCYCLINE
     Indication: Brain abscess
     Route: 065
  3. AMOXICILLIN\CLAVULANATE POTASSIUM [Concomitant]
     Active Substance: AMOXICILLIN\CLAVULANATE POTASSIUM
     Indication: Brain abscess
     Route: 065
  4. METHOTREXATE [Concomitant]
     Active Substance: METHOTREXATE
     Indication: Diffuse large B-cell lymphoma
     Route: 065
  5. CYTARABINE [Concomitant]
     Active Substance: CYTARABINE
     Indication: Diffuse large B-cell lymphoma
     Route: 065

REACTIONS (6)
  - Death [Fatal]
  - Confusional state [Unknown]
  - Fall [Unknown]
  - Compression fracture [Unknown]
  - General physical health deterioration [Unknown]
  - Therapy partial responder [Unknown]
